FAERS Safety Report 8880182 (Version 1)
Quarter: 2012Q4

REPORT INFORMATION
  Report Type: 
  Country: US (occurrence: US)
  Receive Date: 20121101
  Receipt Date: 20121101
  Transmission Date: 20130627
  Serious: No
  Sender: FDA-Public Use
  Company Number: US-BAYER-2012-114485

PATIENT
  Age: 81 Year
  Sex: Female
  Weight: 61.68 kg

DRUGS (2)
  1. ALEVE LIQUID GELS [Suspect]
     Dosage: 1 DF, QD
     Route: 048
     Dates: start: 201210
  2. ALEVE CAPLET/TABLET,MIDOL EXTENDED RELIEF CAPLET [Suspect]
     Dosage: 1 DF, UNK
     Route: 048

REACTIONS (2)
  - Burn oesophageal [None]
  - Drug ineffective [None]
